FAERS Safety Report 5576003-0 (Version None)
Quarter: 2007Q4

REPORT INFORMATION
  Report Type: 
  Country: None (occurrence: None)
  Receive Date: 20071228
  Receipt Date: 20071220
  Transmission Date: 20080405
  Serious: Yes (Hospitalization, Other)
  Sender: FDA-Public Use
  Company Number: PHFR2007GB03590

PATIENT
  Age: 28 Year
  Sex: Male

DRUGS (3)
  1. CLOZARIL [Suspect]
     Indication: SCHIZOPHRENIA
     Dosage: 25 MG/DAY
     Route: 048
     Dates: start: 20071207, end: 20071209
  2. RISPERIDONE [Interacting]
     Indication: SCHIZOPHRENIA
     Dosage: 50 MG, QW2
     Route: 030
     Dates: start: 20070101, end: 20071121
  3. HERBAL PREPARATION [Suspect]
     Route: 048
     Dates: start: 20070101, end: 20071209

REACTIONS (2)
  - DRUG INTERACTION [None]
  - GRAND MAL CONVULSION [None]
